FAERS Safety Report 4584854-4 (Version None)
Quarter: 2005Q1

REPORT INFORMATION
  Report Type: 
  Country: None (occurrence: None)
  Receive Date: 20050217
  Receipt Date: 20041026
  Transmission Date: 20050727
  Serious: No
  Sender: FDA-Public Use
  Company Number: US-GLAXOSMITHKLINE-A0531288A

PATIENT
  Age: 35 Year
  Sex: Female
  Weight: 75.5 kg

DRUGS (4)
  1. WELLBUTRIN XL [Suspect]
     Dosage: 300MG PER DAY
     Route: 048
  2. PAXIL [Concomitant]
     Dosage: 20MG UNKNOWN
     Route: 048
  3. ASPIRIN [Concomitant]
  4. COLD MEDICATION [Concomitant]

REACTIONS (6)
  - AGITATION [None]
  - DIZZINESS [None]
  - DRY MOUTH [None]
  - HEADACHE [None]
  - MALAISE [None]
  - NAUSEA [None]
